FAERS Safety Report 7158958-6 (Version None)
Quarter: 2010Q4

REPORT INFORMATION
  Report Type: 
  Country: None (occurrence: None)
  Receive Date: 20101214
  Receipt Date: 20100930
  Transmission Date: 20110411
  Serious: No
  Sender: FDA-Public Use
  Company Number: US-ASTRAZENECA-2010SE33808

PATIENT
  Age: 71 Year
  Sex: Female
  Weight: 76.7 kg

DRUGS (1)
  1. CRESTOR [Suspect]
     Indication: HYPERLIPIDAEMIA
     Route: 048
     Dates: start: 20090629, end: 20100727

REACTIONS (1)
  - HAIR TEXTURE ABNORMAL [None]
